FAERS Safety Report 7409049-8 (Version None)
Quarter: 2011Q2

REPORT INFORMATION
  Report Type: 
  Country: None (occurrence: None)
  Receive Date: 20110412
  Receipt Date: 20110408
  Transmission Date: 20111010
  Serious: Yes (Death, Hospitalization)
  Sender: FDA-Public Use
  Company Number: PHHY2011US12464

PATIENT
  Sex: Male

DRUGS (5)
  1. PLAVIX [Concomitant]
     Indication: PERIPHERAL VASCULAR DISORDER
     Dosage: 75 MG, DAILY
     Route: 048
     Dates: end: 20110206
  2. GLEEVEC [Suspect]
     Indication: CHRONIC MYELOID LEUKAEMIA
     Dosage: 400 MG, DAILY
     Route: 048
     Dates: start: 20061228, end: 20110206
  3. BENICAR [Concomitant]
     Indication: HYPERTENSION
     Dosage: 20 MG, DAILY
     Route: 048
     Dates: end: 20110206
  4. CRESTOR [Concomitant]
     Indication: HYPERLIPIDAEMIA
     Dosage: 5 MG, DAILY
     Route: 048
     Dates: end: 20110206
  5. M.V.I. [Concomitant]
     Route: 048
     Dates: end: 20110206

REACTIONS (4)
  - VENTRICULAR TACHYCARDIA [None]
  - FALL [None]
  - CARDIAC ARREST [None]
  - VENTRICULAR FIBRILLATION [None]
